FAERS Safety Report 9444072 (Version 2)
Quarter: 2014Q1

REPORT INFORMATION
  Report Type: Spontaneous
  Country: US (occurrence: US)
  Receive Date: 20130807
  Receipt Date: 20140211
  Transmission Date: 20141002
  Serious: No
  Sender: FDA-Public Use
  Company Number: US-B.I. PHARMACEUTICALS,INC./RIDGEFIELD-2013-BI-23283BP

PATIENT
  Age: 57 Year
  Sex: Female
  Weight: 53.07 kg

DRUGS (6)
  1. COMBIVENT [Suspect]
     Indication: CHRONIC OBSTRUCTIVE PULMONARY DISEASE
     Dosage: DOSE PER APPLICATION: 20 MCG / 100 MCG; DAILY DOSE: 80 MCG/400 MCG
     Route: 055
     Dates: start: 20130715
  2. COMBIVENT [Suspect]
     Indication: EMPHYSEMA
  3. COMBIVENT [Suspect]
     Indication: CHRONIC OBSTRUCTIVE PULMONARY DISEASE
     Dosage: DOSE PER APPLICATION: 18 MCG / 103 MCG;
     Route: 055
  4. COMBIVENT [Suspect]
     Indication: EMPHYSEMA
  5. ALBUTEROL [Concomitant]
  6. ATROVENT [Concomitant]

REACTIONS (3)
  - Cough [Unknown]
  - Dyspnoea [Unknown]
  - Product quality issue [Unknown]
